FAERS Safety Report 13614835 (Version 1)
Quarter: 2017Q2

REPORT INFORMATION
  Report Type: Spontaneous
  Country: US (occurrence: US)
  Receive Date: 20170606
  Receipt Date: 20170606
  Transmission Date: 20170830
  Serious: No
  Sender: FDA-Public Use
  Company Number: US-CONCORDIA PHARMACEUTICALS INC.-MAPI_00011967

PATIENT
  Age: 10 Year
  Sex: Female

DRUGS (1)
  1. ULESFIA [Suspect]
     Active Substance: BENZYL ALCOHOL
     Indication: LICE INFESTATION
     Route: 061
     Dates: start: 20160516, end: 20160522

REACTIONS (1)
  - Drug ineffective [Unknown]
